FAERS Safety Report 9936872 (Version 1)
Quarter: 2014Q1

REPORT INFORMATION
  Report Type: Spontaneous
  Country: US (occurrence: None)
  Receive Date: 20140115
  Receipt Date: 20140115
  Transmission Date: 20141002
  Serious: No
  Sender: FDA-Public Use
  Company Number: 2013US002710

PATIENT
  Age: 70 Year
  Sex: Female
  Weight: 104 kg

DRUGS (9)
  1. ICLUSIG (PONTINIB) TABLET , 15MG [Suspect]
     Indication: CHRONIC MYELOID LEUKAEMIA
     Route: 048
  2. LASIX (FUROSEMIDE) [Concomitant]
  3. FISH OIL (FISH OIL) [Concomitant]
  4. COREG (CARVEDILOL) [Concomitant]
  5. COREG (CARVEDILOL) [Concomitant]
  6. VITAMIN D (VITAMIN D) [Concomitant]
  7. AMARYL (GLIMEPIRIDE) [Concomitant]
  8. GLUCOSAMINE CHONDROITIN (CHONDROITIN SULFATE, GLUCOSAMINE) [Concomitant]
  9. ASPIRIN (ASPIRIN) [Concomitant]

REACTIONS (3)
  - Heart rate irregular [None]
  - Dyspnoea [None]
  - Muscle spasms [None]
